FAERS Safety Report 9648942 (Version 1)
Quarter: 2013Q4

REPORT INFORMATION
  Report Type: Spontaneous
  Country: US (occurrence: None)
  Receive Date: 20131018
  Receipt Date: 20131018
  Transmission Date: 20140711
  Serious: Yes (Other)
  Sender: FDA-Public Use
  Company Number: AEGR000125

PATIENT
  Age: 37 Year
  Sex: Female
  Weight: 107.5 kg

DRUGS (9)
  1. JUXTAPID [Suspect]
     Route: 048
     Dates: start: 20130716, end: 20130815
  2. VYTORIN (EZETIMIBE, SIMVASTATIN) [Concomitant]
  3. VENTOLIN (SALBUTAMOL SULFATE) [Concomitant]
  4. ASPIRIN (ACETYLSALICYLIC ACID) [Concomitant]
  5. BYSTOLIC (NEBIVOLOL HYDROCHLORIDE) [Concomitant]
  6. LOSARTAN POTASSIUM AND HYDROCHLOROTHIAZIDE (HYDROCHLOROTHIAZIDE, LOSARTAN POTASSIUM) [Concomitant]
  7. PLAVIX (CLOPIDOGREL BISULFATE) [Concomitant]
  8. PRILOSEC [Concomitant]
  9. CIPROFLOXACIN (CIPROFLOXACIN HYDROCHLORIDE) [Concomitant]

REACTIONS (2)
  - Diverticulitis [None]
  - Abdominal pain upper [None]
